FAERS Safety Report 8903228 (Version 1)
Quarter: 2012Q4

REPORT INFORMATION
  Report Type: Report from Study
  Country: US (occurrence: US)
  Receive Date: 20121113
  Receipt Date: 20121113
  Transmission Date: 20130627
  Serious: Yes (Death)
  Sender: FDA-Public Use
  Company Number: US-PFIZER INC-2012280208

PATIENT
  Age: 74 Year
  Sex: Male
  Weight: 126.98 kg

DRUGS (33)
  1. IRINOTECAN HCL [Suspect]
     Indication: COLORECTAL CANCER METASTATIC
     Dosage: 180 mg/m2, day 1 every 14 Days
     Route: 042
     Dates: start: 20120530, end: 20121031
  2. FLUOROURACIL [Suspect]
     Indication: COLORECTAL CANCER METASTATIC
     Dosage: 400 mg/m2, day one every 14 days
     Route: 042
     Dates: start: 20120530, end: 20121031
  3. FLUOROURACIL [Suspect]
     Dosage: 2500 mg/m2, cyclic, on days 1 and 2 every 14 days
     Route: 042
     Dates: start: 20120530, end: 20121031
  4. FOLINIC ACID [Suspect]
     Indication: COLORECTAL CANCER METASTATIC
     Dosage: 400 mg/m2, day one every 14 days
     Route: 042
     Dates: start: 20120530, end: 20121031
  5. BLINDED THERAPY [Suspect]
     Indication: COLORECTAL CANCER METASTATIC
     Dosage: UNK
     Route: 042
     Dates: start: 20120530, end: 20121031
  6. KLOR-CON [Concomitant]
     Dosage: UNK
     Dates: start: 1994
  7. LASIX [Concomitant]
     Dosage: UNK
     Dates: start: 1994
  8. NEXIUM [Concomitant]
     Dosage: UNK
     Dates: start: 1994
  9. LEXAPRO [Concomitant]
     Dosage: UNK
     Dates: start: 1994
  10. VESICARE [Concomitant]
     Dosage: UNK
     Dates: start: 201102
  11. XANAX [Concomitant]
     Dosage: UNK
     Dates: start: 1994
  12. MULTIVITAMINS [Concomitant]
     Dosage: UNK
     Dates: start: 1994
  13. DIOVAN (VALSARTAN) [Concomitant]
     Dosage: UNK
     Dates: start: 1994
  14. VITAMIN B6 [Concomitant]
     Dosage: UNK
     Dates: start: 1994
  15. RESTORIL [Concomitant]
     Dosage: UNK
     Dates: start: 1994
  16. REQUIP [Concomitant]
     Dosage: UNK
     Dates: start: 1994
  17. CARDIZEM [Concomitant]
     Dosage: UNK
     Dates: start: 1994
  18. NOVOLOG [Concomitant]
     Dosage: UNK
     Dates: start: 201008
  19. LANTUS [Concomitant]
     Dosage: UNK
     Dates: start: 201008
  20. PERCOCET [Concomitant]
     Dosage: UNK
     Dates: start: 20120413
  21. OXYCONTIN [Concomitant]
     Dosage: UNK
     Dates: start: 20120530
  22. COMPAZINE [Concomitant]
     Dosage: UNK
     Dates: start: 20120123
  23. MAGNESIUM OXIDE [Concomitant]
     Dosage: UNK
     Dates: start: 20120615
  24. BENADRYL [Concomitant]
     Dosage: UNK
     Dates: start: 20120621
  25. ALLOPURINOL [Concomitant]
     Dosage: UNK
     Dates: start: 20120629
  26. COLCHICINE [Concomitant]
     Dosage: UNK
     Dates: start: 20120711
  27. PEPCID [Concomitant]
     Dosage: UNK
     Dates: start: 2005
  28. OXISTAT [Concomitant]
     Dosage: UNK
     Dates: start: 20120823
  29. CLOCORTOLONE [Concomitant]
     Dosage: UNK
     Dates: start: 20120823
  30. DIFLUCAN [Concomitant]
     Dosage: UNK
     Dates: start: 20121012
  31. DEXAMETHASONE SODIUM PHOSPHATE [Concomitant]
     Dosage: UNK
     Dates: start: 20120530
  32. PALONOSETRON [Concomitant]
     Dosage: UNK
     Dates: start: 20120530
  33. ATROPINE [Concomitant]
     Dosage: UNK
     Dates: start: 20120530

REACTIONS (1)
  - Cardio-respiratory arrest [Fatal]
